FAERS Safety Report 15808425 (Version 1)
Quarter: 2019Q1

REPORT INFORMATION
  Report Type: Spontaneous
  Country: US (occurrence: US)
  Receive Date: 20190110
  Receipt Date: 20190110
  Transmission Date: 20190417
  Serious: Yes (Hospitalization)
  Sender: FDA-Public Use
  Company Number: US-ALLERGAN-1900980US

PATIENT
  Age: 32 Year
  Sex: Female

DRUGS (5)
  1. ESTRADIOL UNK [Suspect]
     Active Substance: ESTRADIOL
     Indication: AUTONOMIC NERVOUS SYSTEM IMBALANCE
     Dosage: 0.1 MG, BI-WEEKLY
     Route: 062
  2. ESTRADIOL UNK [Suspect]
     Active Substance: ESTRADIOL
     Indication: HORMONE REPLACEMENT THERAPY
  3. CONTRACEPTIVES [Concomitant]
     Active Substance: UNSPECIFIED INGREDIENT
     Indication: HORMONE REPLACEMENT THERAPY
     Dosage: UNK
     Route: 048
  4. ESTRADIOL UNK [Suspect]
     Active Substance: ESTRADIOL
     Indication: BONE DISORDER
     Dosage: UNK
     Route: 062
  5. CONTRACEPTIVES [Concomitant]
     Active Substance: UNSPECIFIED INGREDIENT
     Dosage: UNK
     Route: 048

REACTIONS (7)
  - Autonomic nervous system imbalance [Recovering/Resolving]
  - Mood altered [Recovering/Resolving]
  - Myocardial strain [Unknown]
  - Pulmonary embolism [Unknown]
  - Contraindicated product administered [Unknown]
  - Sleep disorder [Unknown]
  - Off label use [Unknown]
